FAERS Safety Report 9577017 (Version 1)
Quarter: 2013Q4

REPORT INFORMATION
  Report Type: Spontaneous
  Country: US (occurrence: US)
  Receive Date: 20131001
  Receipt Date: 20131001
  Transmission Date: 20140711
  Serious: No
  Sender: FDA-Public Use
  Company Number: US-AMGEN-USASP2013005819

PATIENT
  Age: 44 Year
  Sex: Female

DRUGS (6)
  1. ENBREL [Suspect]
     Indication: RHEUMATOID ARTHRITIS
     Dosage: 50 MG, QWK
     Route: 058
  2. MULTIVITAMINS, PLAIN [Concomitant]
     Dosage: UNK
  3. PREDNISONE [Concomitant]
     Dosage: 10 MG, UNK
  4. FOLIC ACID [Concomitant]
     Dosage: UNK
  5. VITAMIN B12                        /00056201/ [Concomitant]
     Dosage: 1000 MUG, UNK
  6. OMEGA 3                            /01334101/ [Concomitant]
     Dosage: 1000 MG, UNK

REACTIONS (1)
  - Nasopharyngitis [Unknown]
